FAERS Safety Report 8809646 (Version 4)
Quarter: 2014Q1

REPORT INFORMATION
  Report Type: Spontaneous
  Country: US (occurrence: US)
  Receive Date: 20120926
  Receipt Date: 20140131
  Transmission Date: 20141002
  Serious: Yes (Other)
  Sender: FDA-Public Use
  Company Number: US-ASTRAZENECA-2012SE72656

PATIENT
  Age: 63 Year
  Sex: Female
  Weight: 108.9 kg

DRUGS (11)
  1. NEXIUM [Suspect]
     Indication: GASTROOESOPHAGEAL REFLUX DISEASE
     Route: 048
  2. NEXIUM [Suspect]
     Indication: GASTROOESOPHAGEAL REFLUX DISEASE
     Route: 048
     Dates: start: 2001, end: 20140102
  3. PRILOSEC [Suspect]
     Route: 048
  4. LISINOPRIL HCTZ [Suspect]
     Indication: HYPERTENSION
     Dosage: 20 MG 25 MG DAILY
     Route: 048
  5. CITALOPRAM [Concomitant]
     Indication: ANXIETY
     Route: 048
  6. AMLOPIDINE BESYLATE [Concomitant]
     Indication: HYPERTENSION
     Route: 048
  7. HUMULOG [Concomitant]
     Indication: DIABETES MELLITUS
     Dosage: 25 UNITS BEFORE MEALS
     Route: 058
  8. HUMULOG [Concomitant]
     Indication: DIABETES MELLITUS
     Dosage: 15 UNITS AT NIGHT
     Route: 058
  9. LANTUS [Concomitant]
     Indication: DIABETES MELLITUS
     Dosage: 10 UNITS AT NIGHT
     Route: 058
  10. VITAMIN B 12 [Concomitant]
     Indication: SUPPLEMENTATION THERAPY
     Dosage: ONCE Q4WK
  11. VITAMIN D WITH MAGNESIUM AND CALCIUM [Concomitant]
     Indication: SUPPLEMENTATION THERAPY
     Dosage: 1 PILL TID
     Route: 048

REACTIONS (20)
  - Gait disturbance [Unknown]
  - Ankle fracture [Unknown]
  - Fall [Unknown]
  - Gastrooesophageal reflux disease [Unknown]
  - Pain [Unknown]
  - Dyspepsia [Unknown]
  - Weight decreased [Unknown]
  - Osteoarthritis [Unknown]
  - Diabetes mellitus [Unknown]
  - Hypermetropia [Unknown]
  - Intervertebral disc protrusion [Unknown]
  - Anxiety [Unknown]
  - Vomiting [Unknown]
  - Malaise [Unknown]
  - Abdominal pain upper [Unknown]
  - Insomnia [Unknown]
  - Hypersomnia [Unknown]
  - Off label use [Unknown]
  - Drug ineffective [Unknown]
  - Drug dose omission [Unknown]
